FAERS Safety Report 23050990 (Version 1)
Quarter: 2023Q4

REPORT INFORMATION
  Report Type: Spontaneous
  Country: US (occurrence: None)
  Receive Date: 20231009
  Receipt Date: 20231009
  Transmission Date: 20240109
  Serious: Yes (Other)
  Sender: FDA-Public Use
  Company Number: None

PATIENT
  Age: 62 Year
  Sex: Female
  Weight: 90 kg

DRUGS (1)
  1. LUMASON [Suspect]
     Active Substance: SULFUR HEXAFLUORIDE
     Indication: Echocardiogram
     Dosage: OTHER FREQUENCY : ONCE;?
     Route: 040
     Dates: start: 20230925, end: 20230925

REACTIONS (6)
  - Taste disorder [None]
  - Pruritus [None]
  - Nausea [None]
  - Vomiting [None]
  - Unresponsive to stimuli [None]
  - Drug hypersensitivity [None]

NARRATIVE: CASE EVENT DATE: 20230925
